FAERS Safety Report 13115558 (Version 2)
Quarter: 2017Q1

REPORT INFORMATION
  Report Type: Spontaneous
  Country: US (occurrence: US)
  Receive Date: 20170114
  Receipt Date: 20170221
  Transmission Date: 20170428
  Serious: Yes (Death, Hospitalization, Other)
  Sender: FDA-Public Use
  Company Number: US-BAXTER-2017BAX000901

PATIENT
  Age: 62 Year
  Sex: Male

DRUGS (1)
  1. 0.9% SODIUM CHLORIDE INJECTION [Suspect]
     Active Substance: SODIUM CHLORIDE
     Indication: HAEMODIALYSIS
     Dosage: STARTED ON AN UNREPORTED DATE BEFORE 2016
     Route: 010
     Dates: end: 20170201

REACTIONS (7)
  - Disease complication [Unknown]
  - Back pain [Unknown]
  - Adverse drug reaction [Unknown]
  - Hypotension [Unknown]
  - Sepsis [Fatal]
  - Hallucination [Unknown]
  - Fall [Unknown]

NARRATIVE: CASE EVENT DATE: 20161231
